FAERS Safety Report 14152399 (Version 1)
Quarter: 2017Q4

REPORT INFORMATION
  Report Type: Spontaneous
  Country: US (occurrence: None)
  Receive Date: 20171102
  Receipt Date: 20171102
  Transmission Date: 20180321
  Serious: No
  Sender: FDA-Public Use
  Company Number: None

PATIENT
  Age: 27 Year
  Sex: Female
  Weight: 64.86 kg

DRUGS (5)
  1. PROZASIN [Concomitant]
  2. NEXPLANON [Suspect]
     Active Substance: ETONOGESTREL
  3. PHENTERMINE. [Concomitant]
     Active Substance: PHENTERMINE
  4. ALLI [Concomitant]
     Active Substance: ORLISTAT
  5. CLONOZOPAM [Concomitant]

REACTIONS (1)
  - Weight increased [None]

NARRATIVE: CASE EVENT DATE: 20170901
